FAERS Safety Report 8313070-5 (Version None)
Quarter: 2012Q2

REPORT INFORMATION
  Report Type: 
  Country: None (occurrence: None)
  Receive Date: 20120426
  Receipt Date: 20120423
  Transmission Date: 20120825
  Serious: Yes (Life-Threatening)
  Sender: FDA-Public Use
  Company Number: JP-PFIZER INC-2012028486

PATIENT
  Age: 32 Year
  Sex: Female
  Weight: 53.5 kg

DRUGS (12)
  1. TEMSIROLIMUS [Suspect]
     Dosage: 25 MG, WEEKLY
     Route: 042
     Dates: start: 20111028
  2. TEMSIROLIMUS [Suspect]
     Dosage: 25 MG, WEEKLY
     Route: 042
     Dates: start: 20111104
  3. PLATELETS, HUMAN BLOOD [Concomitant]
     Dosage: 20 IU, 1X/DAY
     Route: 042
     Dates: start: 20111023
  4. TEMSIROLIMUS [Suspect]
     Indication: METASTATIC RENAL CELL CARCINOMA
     Dosage: 25 MG, WEEKLY
     Route: 042
     Dates: start: 20111014
  5. POLARAMINE [Concomitant]
     Indication: PROPHYLAXIS
     Dosage: 5 MG, 1X/DAY
     Route: 042
  6. PLATELETS, HUMAN BLOOD [Concomitant]
     Indication: RENAL CELL CARCINOMA
     Dosage: 20 IU, 1X/DAY
     Route: 042
     Dates: start: 20111020
  7. MANNITOL [Concomitant]
     Indication: RENAL CELL CARCINOMA
     Dosage: 4 IU, 1X/DAY
     Route: 042
     Dates: start: 20111019
  8. ZOSYN [Suspect]
     Indication: RENAL CELL CARCINOMA
     Dosage: 4.5 G, 1X/DAY
     Route: 042
     Dates: start: 20111027, end: 20111027
  9. BETAMETHASONE [Concomitant]
     Indication: RENAL CELL CARCINOMA
     Dosage: 1 MG, 2X/DAY
     Route: 048
     Dates: start: 20110828, end: 20111109
  10. BOSMIN [Concomitant]
     Dosage: 0.2 MG, 1X/DAY
     Route: 030
     Dates: start: 20111022, end: 20111027
  11. TEMSIROLIMUS [Suspect]
     Dosage: 25 MG, WEEKLY
     Route: 042
     Dates: start: 20111021
  12. TEMSIROLIMUS [Suspect]
     Dosage: 20 MG, WEEKLY
     Route: 042
     Dates: start: 20111111, end: 20111226

REACTIONS (2)
  - ANAPHYLACTIC SHOCK [None]
  - INTERSTITIAL LUNG DISEASE [None]
